FAERS Safety Report 25172942 (Version 2)
Quarter: 2025Q2

REPORT INFORMATION
  Report Type: Spontaneous
  Country: US (occurrence: US)
  Receive Date: 20250408
  Receipt Date: 20250528
  Transmission Date: 20250717
  Serious: Yes (Other)
  Sender: PFIZER
  Company Number: US-PFIZER INC-202500068406

PATIENT
  Age: 49 Year
  Sex: Female

DRUGS (4)
  1. TIVDAK [Suspect]
     Active Substance: TISOTUMAB VEDOTIN-TFTV
     Indication: Squamous cell carcinoma of the cervix
     Dosage: 157MG IV EVERY 3 WEEKS
     Route: 042
     Dates: start: 20230210
  2. TIVDAK [Suspect]
     Active Substance: TISOTUMAB VEDOTIN-TFTV
     Dosage: 71 MG, EVERY 3 WEEKS
     Dates: start: 20250103
  3. LOPERAMIDE [Concomitant]
     Active Substance: LOPERAMIDE
     Indication: Fistula
  4. CHOLESTYRAMINE [Concomitant]
     Active Substance: CHOLESTYRAMINE
     Indication: Fistula

REACTIONS (6)
  - Neuropathy peripheral [Unknown]
  - Squamous cell carcinoma of the cervix [Unknown]
  - Malignant neoplasm progression [Unknown]
  - Small intestinal obstruction [Unknown]
  - Fatigue [Unknown]
  - Off label use [Unknown]
